FAERS Safety Report 4369910-8 (Version None)
Quarter: 2004Q2

REPORT INFORMATION
  Report Type: 
  Country: None (occurrence: None)
  Receive Date: 20040527
  Receipt Date: 20040505
  Transmission Date: 20050107
  Serious: Yes (Death, Life-Threatening, Hospitalization)
  Sender: FDA-Public Use
  Company Number: DE_040212952

PATIENT
  Age: 67 Year
  Sex: Female

DRUGS (1)
  1. XIGRIS [Suspect]
     Indication: MENINGOCOCCAL SEPSIS
     Dates: start: 20031224, end: 20031227

REACTIONS (4)
  - APALLIC SYNDROME [None]
  - HEPATIC FAILURE [None]
  - LARGE INTESTINAL ULCER HAEMORRHAGE [None]
  - RENAL FAILURE ACUTE [None]
